FAERS Safety Report 24669768 (Version 1)
Quarter: 2024Q4

REPORT INFORMATION
  Report Type: Spontaneous
  Country: US (occurrence: None)
  Receive Date: 20241126
  Receipt Date: 20241126
  Transmission Date: 20250115
  Serious: Yes (Hospitalization, Other)
  Sender: Public
  Company Number: None

PATIENT
  Age: 46 Year
  Sex: Male
  Weight: 90 kg

DRUGS (1)
  1. HERBALS\MITRAGYNINE [Suspect]
     Active Substance: HERBALS\MITRAGYNINE
     Indication: Analgesic therapy
     Dates: start: 20240709, end: 20241125

REACTIONS (3)
  - Drug withdrawal syndrome [None]
  - Drug dependence [None]
  - Drug dependence [None]

NARRATIVE: CASE EVENT DATE: 20241125
